FAERS Safety Report 11251832 (Version 1)
Quarter: 2015Q3

REPORT INFORMATION
  Report Type: Spontaneous
  Country: US (occurrence: US)
  Receive Date: 20150708
  Receipt Date: 20150708
  Transmission Date: 20151125
  Serious: Yes (Other)
  Sender: FDA-Public Use
  Company Number: US-ELI_LILLY_AND_COMPANY-US201204002216

PATIENT
  Sex: Male
  Weight: 63.49 kg

DRUGS (2)
  1. GEMZAR [Suspect]
     Active Substance: GEMCITABINE HYDROCHLORIDE
     Indication: HEPATOCELLULAR CARCINOMA
     Dosage: UNK, WEEKLY FOR 3 WEEKS THEN OFF FOR 1 WEEK
     Route: 042
     Dates: start: 201102, end: 201106
  2. CARBOPLATIN. [Concomitant]
     Active Substance: CARBOPLATIN
     Indication: HEPATOCELLULAR CARCINOMA

REACTIONS (2)
  - Off label use [Unknown]
  - Pancytopenia [Recovered/Resolved]
